FAERS Safety Report 9257974 (Version 2)
Quarter: 2013Q2

REPORT INFORMATION
  Report Type: Report from Study
  Country: JP (occurrence: JP)
  Receive Date: 20130426
  Receipt Date: 20130529
  Transmission Date: 20140414
  Serious: Yes (Death, Hospitalization)
  Sender: FDA-Public Use
  Company Number: JP-ROCHE-1217843

PATIENT
  Age: 84 Year
  Sex: Male

DRUGS (15)
  1. ALTEPLASE [Suspect]
     Indication: EMBOLIC STROKE
     Route: 042
     Dates: start: 20120510, end: 20120510
  2. DOPAMINE HYDROCHLORIDE [Concomitant]
  3. LANSOPRAZOLE [Concomitant]
     Route: 048
     Dates: start: 20120515
  4. NICARDIPINE HYDROCHLORIDE [Concomitant]
     Route: 051
     Dates: start: 20120510, end: 20120510
  5. RADICUT [Concomitant]
     Route: 041
     Dates: start: 20120510, end: 20120515
  6. RADICUT [Concomitant]
     Route: 041
     Dates: start: 20120516, end: 20120516
  7. HEPARIN SODIUM [Concomitant]
     Route: 041
     Dates: start: 20120511, end: 20120528
  8. CLOPIDOGREL [Concomitant]
  9. FAMOTIDINE [Concomitant]
     Route: 051
     Dates: start: 20120510, end: 20120510
  10. DILTIAZEM HYDROCHLORIDE [Concomitant]
     Route: 051
     Dates: start: 20120511, end: 20120530
  11. LANSOPRAZOLE [Concomitant]
     Route: 051
     Dates: start: 20120511, end: 20120514
  12. BUPRENORPHINE HYDROCHLORIDE [Concomitant]
     Route: 065
     Dates: start: 20120512, end: 20120515
  13. DOBUTAMINE HYDROCHLORIDE [Concomitant]
     Route: 051
     Dates: start: 20120512, end: 20120516
  14. SODIUM FERROUS CITRATE [Concomitant]
     Route: 048
     Dates: start: 20120515, end: 20120524
  15. FUDOSTEINE [Concomitant]
     Route: 048
     Dates: start: 20120515

REACTIONS (5)
  - Cardiac failure acute [Fatal]
  - Pneumonia aspiration [Recovered/Resolved]
  - Acute respiratory failure [Recovered/Resolved]
  - Aspiration [Recovered/Resolved]
  - Mouth haemorrhage [Recovered/Resolved]
